FAERS Safety Report 24270445 (Version 1)
Quarter: 2024Q3

REPORT INFORMATION
  Report Type: Spontaneous
  Country: US (occurrence: US)
  Receive Date: 20240830
  Receipt Date: 20240830
  Transmission Date: 20241016
  Serious: No
  Sender: LGM PHARMA
  Company Number: US-LGM Pharma Solutions, LLC-2161058

PATIENT
  Age: 6 Year
  Sex: Male

DRUGS (1)
  1. CHENODAL [Suspect]
     Active Substance: CHENODIOL
     Indication: Lipid metabolism disorder
     Route: 048
     Dates: start: 202310

REACTIONS (2)
  - Enuresis [Unknown]
  - Anal incontinence [Unknown]
